FAERS Safety Report 4842813-8 (Version None)
Quarter: 2005Q4

REPORT INFORMATION
  Report Type: 
  Country: None (occurrence: None)
  Receive Date: 20051130
  Receipt Date: 20051115
  Transmission Date: 20060501
  Serious: Yes (Death)
  Sender: FDA-Public Use
  Company Number: CAO05001098

PATIENT
  Age: 75 Year
  Sex: Female
  Weight: 27.2 kg

DRUGS (4)
  1. PEPTO-BISMOL ORIGINAL FORMULA, ORIGINAL FLAVOR (BISMUTH SUBSALICYLATE [Suspect]
     Indication: STOMACH DISCOMFORT
     Dosage: 10 ML, 1 ONLY FOR 1 DAY, ORAL
     Route: 048
     Dates: start: 20051114, end: 20051114
  2. TRAZODONE HCL [Concomitant]
  3. ^NEBULIZER^ [Concomitant]
  4. ^INHALERS^ [Concomitant]

REACTIONS (4)
  - ASPIRATION [None]
  - FOREIGN BODY TRAUMA [None]
  - HEAD INJURY [None]
  - UNEVALUABLE EVENT [None]
